FAERS Safety Report 4640063-1 (Version None)
Quarter: 2005Q2

REPORT INFORMATION
  Report Type: 
  Country: None (occurrence: None)
  Receive Date: 20050415
  Receipt Date: 20050415
  Transmission Date: 20051028
  Serious: No
  Sender: FDA-Public Use
  Company Number: None

PATIENT
  Age: 57 Year
  Sex: Female
  Weight: 89.3586 kg

DRUGS (22)
  1. ZETIA [Suspect]
     Indication: HYPERLIPIDAEMIA
     Dosage: 10 MG QDAY ORAL
     Route: 048
     Dates: start: 20041222, end: 20050411
  2. PULMICORT [Concomitant]
  3. UNIPHYL [Concomitant]
  4. . [Concomitant]
  5. ALBUTEROL SULFATE [Concomitant]
  6. NEBUSOLN [Concomitant]
  7. INTAL [Concomitant]
  8. ACCOLATE [Concomitant]
  9. SEREVENT [Concomitant]
  10. PROVENTIL [Concomitant]
  11. CROMOLYN SODIUM (CROMOLYN SODIUM) [Concomitant]
  12. PATANOL [Concomitant]
  13. FOSAMAX [Concomitant]
  14. CALCIUM GLUCONATE [Concomitant]
  15. PROTONIX [Concomitant]
  16. . [Concomitant]
  17. ZANTAC [Concomitant]
  18. . [Concomitant]
  19. NITROGLYCERIN [Concomitant]
  20. METAMUCIL (PSYLLIUM) [Concomitant]
  21. ALLEGRA (FEXOFENADINE HCL) [Concomitant]
  22. VAGIFEM (ESTRADIOL VAGINAL) [Concomitant]

REACTIONS (1)
  - THROAT TIGHTNESS [None]
